FAERS Safety Report 8366205-2 (Version None)
Quarter: 2012Q2

REPORT INFORMATION
  Report Type: 
  Country: None (occurrence: None)
  Receive Date: 20120517
  Receipt Date: 20120510
  Transmission Date: 20120825
  Serious: Yes (Other)
  Sender: FDA-Public Use
  Company Number: US-ASTELLAS-2012US004667

PATIENT
  Sex: Male
  Weight: 89 kg

DRUGS (4)
  1. PROGRAF [Suspect]
     Indication: PANCREAS TRANSPLANT
     Dosage: 5 MG, UID/QD
     Route: 048
     Dates: start: 20071220
  2. LASIX [Concomitant]
     Indication: PRODUCT USED FOR UNKNOWN INDICATION
     Dosage: 40 MG, UID/QD
     Route: 065
     Dates: start: 20080128
  3. PROGRAF [Suspect]
     Indication: RENAL TRANSPLANT
  4. NORVASC [Concomitant]
     Indication: PRODUCT USED FOR UNKNOWN INDICATION
     Dosage: 10 MG, UID/QD
     Route: 065
     Dates: start: 20071223

REACTIONS (2)
  - OFF LABEL USE [None]
  - PANCREAS TRANSPLANT [None]
